FAERS Safety Report 7738367-9 (Version None)
Quarter: 2011Q3

REPORT INFORMATION
  Report Type: 
  Country: None (occurrence: None)
  Receive Date: 20110908
  Receipt Date: 20110809
  Transmission Date: 20111222
  Serious: Yes (Hospitalization, Other)
  Sender: FDA-Public Use
  Company Number: GB-AMGEN-GBRSP2011033689

PATIENT
  Age: 84 Year
  Sex: Male
  Weight: 69 kg

DRUGS (5)
  1. FUROSEMIDE [Concomitant]
     Dosage: 5 MG, QD
     Route: 048
  2. TAMSULOSIN HCL [Concomitant]
     Dosage: 400 MG, QD
     Route: 048
  3. NPLATE [Suspect]
     Indication: IDIOPATHIC THROMBOCYTOPENIC PURPURA
     Dosage: 3 MUG/KG, QWK
     Route: 058
     Dates: start: 20100121
  4. SIMVASTATIN [Concomitant]
     Indication: HYPERCHOLESTEROLAEMIA
     Dosage: 40 MG, QD
     Route: 048
  5. ATENOLOL [Concomitant]
     Indication: HYPERTENSION
     Dosage: 50 MG, QD
     Route: 048

REACTIONS (2)
  - APHASIA [None]
  - CEREBROVASCULAR ACCIDENT [None]
